FAERS Safety Report 25758517 (Version 3)
Quarter: 2025Q4

REPORT INFORMATION
  Report Type: Spontaneous
  Country: JP (occurrence: JP)
  Receive Date: 20250904
  Receipt Date: 20251222
  Transmission Date: 20260117
  Serious: Yes (Hospitalization)
  Sender: SUNOVION
  Company Number: JP-SMPA-2025SPA011309

PATIENT
  Age: 45 Year
  Sex: Female

DRUGS (1)
  1. RELUGOLIX [Suspect]
     Active Substance: RELUGOLIX
     Indication: Uterine leiomyoma
     Dosage: 40 MG
     Route: 048
     Dates: start: 20250530, end: 20250601

REACTIONS (1)
  - Peritonitis [Recovering/Resolving]

NARRATIVE: CASE EVENT DATE: 20250602
